FAERS Safety Report 8218088-9 (Version None)
Quarter: 2012Q1

REPORT INFORMATION
  Report Type: 
  Country: None (occurrence: None)
  Receive Date: 20120315
  Receipt Date: 20120305
  Transmission Date: 20120608
  Serious: Yes (Disabling, Other)
  Sender: FDA-Public Use
  Company Number: AUR-APL-2012-01352

PATIENT
  Age: 75 Year
  Sex: Female

DRUGS (2)
  1. CALCIUM SUPPLEMENTS [Concomitant]
  2. ALENDRONIC ACID (ALENDRONIC ACID) [Suspect]
     Indication: OSTEOPENIA
     Dosage: 10 MG (70 MG, 1 IN 1 WK),

REACTIONS (9)
  - BLOOD CALCIUM DECREASED [None]
  - INJURY [None]
  - BLOOD PHOSPHORUS DECREASED [None]
  - FRACTURE DELAYED UNION [None]
  - VITAMIN D DEFICIENCY [None]
  - EXOSTOSIS [None]
  - FEMUR FRACTURE [None]
  - HYPERPARATHYROIDISM SECONDARY [None]
  - BONE GRAFT [None]
